FAERS Safety Report 7227896-2 (Version None)
Quarter: 2011Q1

REPORT INFORMATION
  Report Type: 
  Country: None (occurrence: None)
  Receive Date: 20110114
  Receipt Date: 20110106
  Transmission Date: 20110831
  Serious: Yes (Hospitalization)
  Sender: FDA-Public Use
  Company Number: US-MERCK-1101USA00469

PATIENT
  Age: 62 Year
  Sex: Female

DRUGS (6)
  1. LINOPRIL [Concomitant]
     Route: 065
  2. ASPIRIN [Concomitant]
     Route: 065
  3. GLYBURIDE [Concomitant]
     Route: 065
  4. ZETIA [Suspect]
     Indication: BLOOD CHOLESTEROL INCREASED
     Route: 048
     Dates: start: 20100501, end: 20101217
  5. METFORM [Concomitant]
     Route: 065
  6. METOPROLOL [Concomitant]
     Route: 065

REACTIONS (1)
  - MYOCARDIAL INFARCTION [None]
